FAERS Safety Report 9665236 (Version 1)
Quarter: 2013Q4

REPORT INFORMATION
  Report Type: Report from Study
  Country: JP (occurrence: JP)
  Receive Date: 20131103
  Receipt Date: 20131103
  Transmission Date: 20140711
  Serious: Yes (Other)
  Sender: FDA-Public Use
  Company Number: JP-MYLANLABS-2013S1024087

PATIENT
  Age: 51 Year
  Sex: Male

DRUGS (1)
  1. ALENDRONIC ACID [Suspect]
     Indication: OSTEOPOROSIS
     Route: 048

REACTIONS (2)
  - Impaired healing [Recovered/Resolved]
  - Alveolar osteitis [Recovered/Resolved]
